FAERS Safety Report 19753174 (Version 1)
Quarter: 2021Q3

REPORT INFORMATION
  Report Type: Other
  Country: CA (occurrence: CA)
  Receive Date: 20210827
  Receipt Date: 20210827
  Transmission Date: 20211014
  Serious: Yes (Hospitalization)
  Sender: FDA-Public Use
  Company Number: CA-ROCHE-2084400

PATIENT
  Age: 33 Year
  Sex: Male
  Weight: 88.5 kg

DRUGS (27)
  1. FOSAVANCE [Concomitant]
     Active Substance: ALENDRONATE SODIUM\CHOLECALCIFEROL
  2. TERAZOSIN [Concomitant]
     Active Substance: TERAZOSIN HYDROCHLORIDE
  3. MYFORTIC [Suspect]
     Active Substance: MYCOPHENOLATE SODIUM
     Indication: PRODUCT USED FOR UNKNOWN INDICATION
     Route: 065
  4. PREDNISONE. [Concomitant]
     Active Substance: PREDNISONE
  5. OMEGA 3 [Concomitant]
     Active Substance: OMEGA-3 FATTY ACIDS
  6. RITUXAN [Suspect]
     Active Substance: RITUXIMAB
     Dosage: SINGLE INFUSIONS. NOT ALL PIRS RECEIVED. DOSE NOTED ACCORDING TO PRESCRIPTIONS RECEIVED
     Route: 042
     Dates: start: 20210528
  7. DIPHENHYDRAMINE. [Concomitant]
     Active Substance: DIPHENHYDRAMINE
     Indication: PREMEDICATION
     Route: 048
  8. TUMS [Concomitant]
     Active Substance: CALCIUM CARBONATE
  9. NEXIUM [Concomitant]
     Active Substance: ESOMEPRAZOLE MAGNESIUM
  10. RITUXAN [Suspect]
     Active Substance: RITUXIMAB
     Indication: LUPUS NEPHRITIS
     Route: 042
     Dates: start: 20100817, end: 20180309
  11. ACETAMINOPHEN. [Concomitant]
     Active Substance: ACETAMINOPHEN
     Indication: PREMEDICATION
     Route: 048
  12. ASPIRIN. [Concomitant]
     Active Substance: ASPIRIN
  13. BISOPROLOL [Concomitant]
     Active Substance: BISOPROLOL
     Indication: BLOOD PRESSURE MEASUREMENT
     Dates: start: 202108
  14. AMLODIPINE [Concomitant]
     Active Substance: AMLODIPINE BESYLATE
  15. PLAQUENIL [Concomitant]
     Active Substance: HYDROXYCHLOROQUINE SULFATE
  16. IMURAN [Concomitant]
     Active Substance: AZATHIOPRINE
     Dates: end: 2014
  17. ASPRIN [Concomitant]
     Active Substance: ASPIRIN
  18. RITUXAN [Suspect]
     Active Substance: RITUXIMAB
     Dosage: DAY 1, DAY 15. NOT ALL PIRS RECEIVED. DOSE NOTED ACCORDING TO PRESCRIPTIONS RECEIVED
     Route: 042
     Dates: start: 20200325
  19. RASILEZ [Concomitant]
     Active Substance: ALISKIREN
  20. VITAMIN B12 [Concomitant]
     Active Substance: CYANOCOBALAMIN
  21. RITUXAN [Suspect]
     Active Substance: RITUXIMAB
     Dosage: RECEIVED OUTSIDE OF RPAP; DETAILS NOT KNOWN
     Route: 042
     Dates: start: 20070101
  22. METHYLPREDNISOLONE. [Concomitant]
     Active Substance: METHYLPREDNISOLONE
     Indication: PREMEDICATION
     Route: 042
  23. COLACE [Concomitant]
     Active Substance: DOCUSATE SODIUM
  24. ZYPREXA [Concomitant]
     Active Substance: OLANZAPINE
     Indication: ANXIETY
  25. FOSAMAX [Concomitant]
     Active Substance: ALENDRONATE SODIUM
     Dates: end: 2015
  26. PANTOPRAZOLE [Concomitant]
     Active Substance: PANTOPRAZOLE
     Indication: GASTROOESOPHAGEAL REFLUX DISEASE
  27. CIALIS [Concomitant]
     Active Substance: TADALAFIL

REACTIONS (6)
  - Lip swelling [Unknown]
  - Blood creatinine increased [Recovering/Resolving]
  - Feeling abnormal [Unknown]
  - Urticaria [Unknown]
  - Pyrexia [Recovering/Resolving]
  - Hypotension [Unknown]

NARRATIVE: CASE EVENT DATE: 201802
